FAERS Safety Report 19714645 (Version 1)
Quarter: 2021Q3

REPORT INFORMATION
  Report Type: Spontaneous
  Country: IT (occurrence: IT)
  Receive Date: 20210818
  Receipt Date: 20210818
  Transmission Date: 20211014
  Serious: Yes (Hospitalization)
  Sender: FDA-Public Use
  Company Number: IT-SUN PHARMACEUTICAL INDUSTRIES LTD-2021RR-308248

PATIENT
  Age: 52 Year
  Sex: Female

DRUGS (4)
  1. AKINETON [Concomitant]
     Active Substance: BIPERIDEN HYDROCHLORIDE
     Indication: PRODUCT USED FOR UNKNOWN INDICATION
     Dosage: ()
     Route: 065
  2. DIAZEPAM. [Concomitant]
     Active Substance: DIAZEPAM
     Indication: PRODUCT USED FOR UNKNOWN INDICATION
     Dosage: ()
     Route: 065
  3. OLANZAPINE. [Suspect]
     Active Substance: OLANZAPINE
     Indication: DRUG ABUSE
     Dosage: 20 DOSAGE FORM, IN TOTAL
     Route: 048
  4. HALDOL DECANOAS [Concomitant]
     Active Substance: HALOPERIDOL DECANOATE
     Indication: PRODUCT USED FOR UNKNOWN INDICATION
     Dosage: ()
     Route: 030

REACTIONS (3)
  - Sopor [Recovering/Resolving]
  - Drug abuse [Recovering/Resolving]
  - Intentional self-injury [Recovering/Resolving]

NARRATIVE: CASE EVENT DATE: 20210725
